FAERS Safety Report 4620753-7 (Version None)
Quarter: 2005Q2

REPORT INFORMATION
  Report Type: 
  Country: None (occurrence: None)
  Receive Date: 20050321
  Receipt Date: 20041020
  Transmission Date: 20051028
  Serious: Yes (Hospitalization)
  Sender: FDA-Public Use
  Company Number: 2004-10-1204

PATIENT

DRUGS (2)
  1. PEG-INTRON [Suspect]
     Indication: HEPATITIS
  2. REBETOL [Suspect]
     Indication: HEPATITIS

REACTIONS (1)
  - OBLITERATIVE BRONCHIOLITIS [None]
